FAERS Safety Report 4580265-6 (Version None)
Quarter: 2005Q1

REPORT INFORMATION
  Report Type: 
  Country: None (occurrence: None)
  Receive Date: 20050214
  Receipt Date: 20050201
  Transmission Date: 20050727
  Serious: Yes (Other)
  Sender: FDA-Public Use
  Company Number: 392865

PATIENT
  Age: 49 Year
  Sex: Male

DRUGS (9)
  1. KREDEX [Suspect]
  2. LASILIX [Concomitant]
  3. DIGOXIN [Concomitant]
  4. GLUCOPHAGE [Concomitant]
  5. NITRODERM [Concomitant]
  6. LEVOTHYROX [Concomitant]
  7. PLAVIX [Concomitant]
  8. KALEORID [Concomitant]
  9. COVERSYL [Concomitant]

REACTIONS (3)
  - EYE DISORDER [None]
  - HYPERTONIA [None]
  - VISUAL ACUITY REDUCED [None]
